FAERS Safety Report 6957888-X (Version None)
Quarter: 2010Q3

REPORT INFORMATION
  Report Type: 
  Country: None (occurrence: None)
  Receive Date: 20100827
  Receipt Date: 20100827
  Transmission Date: 20110219
  Serious: Yes (Other)
  Sender: FDA-Public Use
  Company Number: None

PATIENT
  Sex: Female
  Weight: 66.2252 kg

DRUGS (2)
  1. EVISTA [Suspect]
     Indication: OSTEOPOROSIS
     Dosage: 60 MG 1XDAY ORAL
     Route: 048
     Dates: start: 20100806, end: 20100820
  2. EVISTA [Suspect]
     Indication: PROPHYLAXIS
     Dosage: 60 MG 1XDAY ORAL
     Route: 048
     Dates: start: 20100806, end: 20100820

REACTIONS (5)
  - ANXIETY [None]
  - CHEST DISCOMFORT [None]
  - DISTURBANCE IN ATTENTION [None]
  - NIGHTMARE [None]
  - PANIC ATTACK [None]
